FAERS Safety Report 25740111 (Version 1)
Quarter: 2025Q3

REPORT INFORMATION
  Report Type: Report from Study
  Country: AR (occurrence: AR)
  Receive Date: 20250829
  Receipt Date: 20250829
  Transmission Date: 20251020
  Serious: Yes (Hospitalization)
  Sender: BIOGEN
  Company Number: AR-BIOGEN-2024BI01244787

PATIENT
  Age: 32 Year
  Sex: Female

DRUGS (2)
  1. TYSABRI [Suspect]
     Active Substance: NATALIZUMAB
     Indication: Multiple sclerosis
     Dosage: LAST APPLICATION ON 08 AUG 2025
     Route: 050
     Dates: start: 20190401
  2. TYSABRI [Suspect]
     Active Substance: NATALIZUMAB
     Indication: Multiple sclerosis
     Route: 050
     Dates: start: 20230807

REACTIONS (4)
  - Multiple sclerosis relapse [Not Recovered/Not Resolved]
  - Off label use [Not Recovered/Not Resolved]
  - Ear pain [Not Recovered/Not Resolved]
  - Vein disorder [Unknown]

NARRATIVE: CASE EVENT DATE: 20240101
